FAERS Safety Report 9716484 (Version 1)
Quarter: 2013Q4

REPORT INFORMATION
  Report Type: Spontaneous
  Country: KR (occurrence: None)
  Receive Date: 20131125
  Receipt Date: 20131125
  Transmission Date: 20140711
  Serious: Yes (Death)
  Sender: FDA-Public Use
  Company Number: 2013P1021107

PATIENT
  Sex: 0

DRUGS (3)
  1. CILOSTAZOL [Suspect]
     Indication: CORONARY ARTERY DISEASE
  2. ASPIRIN [Concomitant]
  3. CLOPIDOGREL [Concomitant]

REACTIONS (2)
  - Pneumonia [None]
  - Cardiac failure [None]
